FAERS Safety Report 4505700-0 (Version None)
Quarter: 2004Q4

REPORT INFORMATION
  Report Type: 
  Country: None (occurrence: None)
  Receive Date: 20041119
  Receipt Date: 20041112
  Transmission Date: 20050328
  Serious: Yes (Life-Threatening, Hospitalization)
  Sender: FDA-Public Use
  Company Number: US-MERCK-0411USA02384

PATIENT
  Age: 44 Year
  Sex: Male

DRUGS (2)
  1. VIOXX [Suspect]
     Indication: ARTHRALGIA
     Route: 048
     Dates: start: 20000101, end: 20020101
  2. CELEBREX [Concomitant]
     Route: 065

REACTIONS (3)
  - ANGINA PECTORIS [None]
  - HYPERTENSION [None]
  - MYOCARDIAL INFARCTION [None]
